FAERS Safety Report 7817306-6 (Version None)
Quarter: 2011Q4

REPORT INFORMATION
  Report Type: 
  Country: None (occurrence: None)
  Receive Date: 20111017
  Receipt Date: 20111011
  Transmission Date: 20120403
  Serious: Yes (Hospitalization, Disabling, Other)
  Sender: FDA-Public Use
  Company Number: US-KINGPHARMUSA00001-K201100933

PATIENT
  Sex: Male
  Weight: 84.807 kg

DRUGS (9)
  1. ATENOLOL [Concomitant]
     Indication: HYPERTENSION
     Dosage: UNK
  2. EMBEDA [Suspect]
     Indication: NECK PAIN
     Dosage: 60 MG, QD
     Dates: start: 20101201, end: 20110301
  3. AMLODIPINE [Concomitant]
     Indication: HYPERTENSION
     Dosage: 10 MG, UNK
  4. TOPAMAX [Concomitant]
     Indication: HEADACHE
     Dosage: 100 MG, QD
  5. LISINOPRIL [Concomitant]
     Indication: HYPERTENSION
     Dosage: UNK
  6. EMBEDA [Suspect]
     Indication: BACK PAIN
     Dosage: 80 MG, QD
     Route: 048
     Dates: start: 20110304
  7. GLIPIZIDE [Concomitant]
     Indication: DIABETES MELLITUS
  8. EMBEDA [Suspect]
     Indication: ARTHRITIS
  9. LANTUS [Concomitant]
     Indication: DIABETES MELLITUS
     Dosage: UNK

REACTIONS (12)
  - POSTERIOR REVERSIBLE ENCEPHALOPATHY SYNDROME [None]
  - BRAIN OEDEMA [None]
  - DISABILITY [None]
  - AMNESIA [None]
  - RENAL FAILURE [None]
  - CONVULSION [None]
  - LOSS OF CONSCIOUSNESS [None]
  - MIGRAINE [None]
  - DEPRESSION [None]
  - DRUG INEFFECTIVE [None]
  - EPILEPSY [None]
  - SPEECH DISORDER [None]
